FAERS Safety Report 9370636 (Version 1)
Quarter: 2013Q2

REPORT INFORMATION
  Report Type: Spontaneous
  Country: IN (occurrence: IN)
  Receive Date: 20130626
  Receipt Date: 20130626
  Transmission Date: 20140414
  Serious: Yes (Other)
  Sender: FDA-Public Use
  Company Number: IN-BAXTER-2013BAX023347

PATIENT
  Sex: 0

DRUGS (1)
  1. BALANCED SALT SOLUTION [Suspect]
     Indication: SURGERY
     Route: 065

REACTIONS (1)
  - Toxic anterior segment syndrome [Unknown]
